FAERS Safety Report 12606373 (Version 2)
Quarter: 2016Q3

REPORT INFORMATION
  Report Type: Report from Study
  Country: US (occurrence: US)
  Receive Date: 20160729
  Receipt Date: 20160816
  Transmission Date: 20161109
  Serious: Yes (Other)
  Sender: FDA-Public Use
  Company Number: US-AEGERION PHARMACEUTICALS-AEGR002677

PATIENT
  Sex: Male
  Weight: 119.73 kg

DRUGS (8)
  1. LANTUS [Concomitant]
     Active Substance: INSULIN GLARGINE
     Indication: PRODUCT USED FOR UNKNOWN INDICATION
     Dosage: 70 UNITS, QHS
  2. COREG [Concomitant]
     Active Substance: CARVEDILOL
     Indication: PRODUCT USED FOR UNKNOWN INDICATION
     Dosage: 25 MG, BID
  3. LISINOPRIL. [Concomitant]
     Active Substance: LISINOPRIL
     Indication: PRODUCT USED FOR UNKNOWN INDICATION
     Dosage: 40 MG, UNK
  4. JUXTAPID [Suspect]
     Active Substance: LOMITAPIDE MESYLATE
     Dosage: 10 MG, QD
     Route: 048
     Dates: start: 201606
  5. VITAMIN D3 [Concomitant]
     Active Substance: CHOLECALCIFEROL
     Indication: PRODUCT USED FOR UNKNOWN INDICATION
     Dosage: 1000 IU, QD
  6. JUXTAPID [Suspect]
     Active Substance: LOMITAPIDE MESYLATE
     Indication: TYPE IIA HYPERLIPIDAEMIA
     Dosage: 5 MG
     Route: 048
     Dates: start: 20150112
  7. HUMALOG [Concomitant]
     Active Substance: INSULIN LISPRO
     Indication: PRODUCT USED FOR UNKNOWN INDICATION
     Dosage: 50 UNITS, QD
  8. JUXTAPID [Suspect]
     Active Substance: LOMITAPIDE MESYLATE
     Dosage: 5 MG, QHS
     Route: 048
     Dates: start: 201605

REACTIONS (5)
  - Hypoglycaemia [Unknown]
  - Abdominal pain upper [Recovered/Resolved]
  - Vomiting [Recovered/Resolved]
  - Hypoglycaemic unconsciousness [Recovered/Resolved]
  - Blood glucose decreased [Recovered/Resolved]
